FAERS Safety Report 15988882 (Version 2)
Quarter: 2019Q1

REPORT INFORMATION
  Report Type: Spontaneous
  Country: CN (occurrence: CN)
  Receive Date: 20190221
  Receipt Date: 20190304
  Transmission Date: 20190418
  Serious: Yes (Other)
  Sender: FDA-Public Use
  Company Number: CN-BEH-2019099395

PATIENT
  Age: 62 Year
  Sex: Female

DRUGS (1)
  1. ALBUMINAR-20 [Suspect]
     Active Substance: ALBUMIN HUMAN
     Indication: HYPOTENSION
     Dosage: 20 G, SINGLE
     Route: 041
     Dates: start: 20190129, end: 20190129

REACTIONS (9)
  - Erythema of eyelid [Recovering/Resolving]
  - Anaphylactic shock [Recovering/Resolving]
  - Pruritus [Recovering/Resolving]
  - Respiratory rate increased [Recovering/Resolving]
  - Eyelid oedema [Recovering/Resolving]
  - Rash [Recovering/Resolving]
  - Oxygen saturation decreased [Recovering/Resolving]
  - Heart rate increased [Recovering/Resolving]
  - Blood pressure decreased [Recovering/Resolving]

NARRATIVE: CASE EVENT DATE: 20190129
